FAERS Safety Report 19182055 (Version 1)
Quarter: 2021Q2

REPORT INFORMATION
  Report Type: Report from Study
  Country: BR (occurrence: BR)
  Receive Date: 20210426
  Receipt Date: 20210426
  Transmission Date: 20210717
  Serious: Yes (Other)
  Sender: FDA-Public Use
  Company Number: BR-SHIRE-BR201502960

PATIENT
  Age: 5 Year
  Sex: Male
  Weight: 28 kg

DRUGS (5)
  1. IDURSULFASE [Suspect]
     Active Substance: IDURSULFASE
     Dosage: 0.35 MG/KG, 1X/2WKS(ALTERNATING WITH 0.7 MG/KG)
     Route: 041
     Dates: start: 20090318
  2. IDURSULFASE [Suspect]
     Active Substance: IDURSULFASE
     Dosage: 0.7 MILLIGRAM/KILOGRAM, Q2WEEKS
     Route: 041
     Dates: start: 20090318
  3. IDURSULFASE [Suspect]
     Active Substance: IDURSULFASE
     Dosage: UNK, UNKNOWN
     Route: 041
     Dates: start: 20090306
  4. IDURSULFASE [Suspect]
     Active Substance: IDURSULFASE
     Dosage: 0.35 MG/KG, 1X/WEEK
     Route: 042
     Dates: start: 20090828
  5. IDURSULFASE [Suspect]
     Active Substance: IDURSULFASE
     Indication: MUCOPOLYSACCHARIDOSIS II
     Dosage: 18 MG(3 VIALS), 1X/WEEK
     Route: 041
     Dates: start: 20150401

REACTIONS (10)
  - Epilepsy [Recovered/Resolved]
  - Oxygen saturation decreased [Recovered/Resolved]
  - Pallor [Unknown]
  - Infusion related reaction [Recovered/Resolved]
  - Hyperaemia [Recovered/Resolved]
  - Cyanosis [Recovered/Resolved]
  - Urticaria [Recovered/Resolved]
  - Pruritus [Recovered/Resolved]
  - Hyperhidrosis [Recovered/Resolved]
  - Infusion site pruritus [Recovered/Resolved]

NARRATIVE: CASE EVENT DATE: 20090401
